FAERS Safety Report 19646897 (Version 3)
Quarter: 2021Q3

REPORT INFORMATION
  Report Type: Spontaneous
  Country: CA (occurrence: CA)
  Receive Date: 20210802
  Receipt Date: 20210916
  Transmission Date: 20211014
  Serious: Yes (Other)
  Sender: FDA-Public Use
  Company Number: CA-PFIZER INC-2020402911

PATIENT
  Age: 75 Year
  Sex: Female

DRUGS (8)
  1. MYCOPHENOLATE MOFETIL. [Concomitant]
     Active Substance: MYCOPHENOLATE MOFETIL
     Dosage: UNK
  2. RUXIENCE [Suspect]
     Active Substance: RITUXIMAB-PVVR
     Indication: CENTRAL NERVOUS SYSTEM VASCULITIS
     Dosage: 1000 MG ON DAY 1 AND DAY 14
     Route: 042
     Dates: start: 20201214, end: 20201214
  3. RUXIENCE [Suspect]
     Active Substance: RITUXIMAB-PVVR
     Indication: CENTRAL NERVOUS SYSTEM VASCULITIS
     Dosage: 1000 MG ON DAY 1 AND DAY 14
     Route: 042
     Dates: start: 20201228, end: 20201228
  4. RUXIENCE [Suspect]
     Active Substance: RITUXIMAB-PVVR
     Dosage: 1000 MG, (RE TREATMENT: ON DAY 1 AND DAY 14)
     Route: 042
     Dates: start: 20210726, end: 20210726
  5. SYNTHROID [Concomitant]
     Active Substance: LEVOTHYROXINE SODIUM
     Dosage: UNK
  6. CELLCEPT [Concomitant]
     Active Substance: MYCOPHENOLATE MOFETIL\MYCOPHENOLATE MOFETIL HYDROCHLORIDE
     Dosage: UNK
  7. RUXIENCE [Suspect]
     Active Substance: RITUXIMAB-PVVR
     Dosage: 1000 MG, (RE TREATMENT: ON DAY 1 AND DAY 14)
     Route: 042
     Dates: start: 20210705, end: 20210705
  8. PREDNISONE. [Concomitant]
     Active Substance: PREDNISONE
     Dosage: 15 MG, DAILY

REACTIONS (6)
  - Pruritus [Recovered/Resolved]
  - Off label use [Unknown]
  - Contusion [Not Recovered/Not Resolved]
  - Rash [Recovered/Resolved]
  - Inappropriate schedule of product administration [Unknown]
  - Syncope [Unknown]

NARRATIVE: CASE EVENT DATE: 20201214
